FAERS Safety Report 6560048-8 (Version None)
Quarter: 2010Q1

REPORT INFORMATION
  Report Type: 
  Country: None (occurrence: None)
  Receive Date: 20100129
  Receipt Date: 20090917
  Transmission Date: 20100710
  Serious: No
  Sender: FDA-Public Use
  Company Number: US-ABBOTT-09P-163-0598229-00

PATIENT
  Weight: 75.364 kg

DRUGS (1)
  1. HUMIRA [Suspect]
     Indication: PSORIATIC ARTHROPATHY
     Route: 058
     Dates: start: 20070601, end: 20090914

REACTIONS (4)
  - EXCORIATION [None]
  - FALL [None]
  - LYMPH NODE PAIN [None]
  - STAPHYLOCOCCAL INFECTION [None]
